FAERS Safety Report 8277429-7 (Version None)
Quarter: 2012Q2

REPORT INFORMATION
  Report Type: 
  Country: None (occurrence: None)
  Receive Date: 20120412
  Receipt Date: 20120406
  Transmission Date: 20120825
  Serious: Yes (Life-Threatening, Hospitalization)
  Sender: FDA-Public Use
  Company Number: JP-PFIZER INC-2012079787

PATIENT
  Age: 79 Year
  Sex: Male
  Weight: 58.4 kg

DRUGS (2)
  1. ZITHROMAX [Suspect]
     Indication: PNEUMONIA
     Dosage: 2 G, SINGLE
     Route: 048
     Dates: start: 20120321, end: 20120321
  2. UNASYN [Suspect]
     Indication: PNEUMONIA
     Dosage: 1.5 G, 2X/DAY
     Route: 041
     Dates: start: 20120321, end: 20120322

REACTIONS (1)
  - NON-CARDIOGENIC PULMONARY OEDEMA [None]
